FAERS Safety Report 15354551 (Version 1)
Quarter: 2018Q3

REPORT INFORMATION
  Report Type: Spontaneous
  Country: US (occurrence: US)
  Receive Date: 20180906
  Receipt Date: 20180906
  Transmission Date: 20181010
  Serious: No
  Sender: FDA-Public Use
  Company Number: US-CELGENEUS-USA-20180900836

PATIENT
  Sex: Male
  Weight: 79 kg

DRUGS (1)
  1. APREMILAST [Suspect]
     Active Substance: APREMILAST
     Indication: PSORIASIS
     Route: 048
     Dates: start: 201807, end: 201808

REACTIONS (3)
  - Genital erythema [Not Recovered/Not Resolved]
  - Pruritus genital [Not Recovered/Not Resolved]
  - Genital odour [Not Recovered/Not Resolved]

NARRATIVE: CASE EVENT DATE: 201807
